FAERS Safety Report 18843973 (Version 1)
Quarter: 2021Q1

REPORT INFORMATION
  Report Type: Spontaneous
  Country: US (occurrence: US)
  Receive Date: 20210204
  Receipt Date: 20210204
  Transmission Date: 20210419
  Serious: No
  Sender: FDA-Public Use
  Company Number: None

PATIENT
  Age: 92 Year
  Sex: Female
  Weight: 67.95 kg

DRUGS (13)
  1. FLONASE 50MCG/ACT [Concomitant]
  2. FULVESTRANT 250MG/5ML [Concomitant]
  3. CELECOXIB 200MG [Concomitant]
     Active Substance: CELECOXIB
  4. FOLIC ACID 1MG [Concomitant]
     Active Substance: FOLIC ACID
  5. CALCIUM 600MG [Concomitant]
  6. RESTASIS [Concomitant]
     Active Substance: CYCLOSPORINE
  7. VITAMIN D3 5000U [Concomitant]
  8. MULTIVITAMIN [Concomitant]
     Active Substance: VITAMINS
  9. PREDNISONE 5MG [Concomitant]
     Active Substance: PREDNISONE
  10. METHOTREXATE 2.5MG [Concomitant]
     Active Substance: METHOTREXATE
  11. SYNTHROID [Concomitant]
     Active Substance: LEVOTHYROXINE SODIUM
  12. IBRANCE [Suspect]
     Active Substance: PALBOCICLIB
     Indication: BREAST CANCER
     Route: 048
     Dates: start: 20201027
  13. LORAZEPAM 0.5MG [Concomitant]
     Active Substance: LORAZEPAM

REACTIONS (1)
  - Alopecia [None]

NARRATIVE: CASE EVENT DATE: 20210204
